FAERS Safety Report 5475556-0 (Version None)
Quarter: 2007Q4

REPORT INFORMATION
  Report Type: 
  Country: None (occurrence: None)
  Receive Date: 20071003
  Receipt Date: 20061024
  Transmission Date: 20080405
  Serious: No
  Sender: FDA-Public Use
  Company Number: US-KINGPHARMUSA00001-K200601346

PATIENT

DRUGS (9)
  1. SONATA [Suspect]
     Indication: INSOMNIA
     Dosage: UNK, UNK
     Route: 048
  2. SYNTHROID [Concomitant]
  3. LASIX [Concomitant]
  4. ALLEGRA [Concomitant]
  5. NAPROSYN [Concomitant]
  6. OMEPRAZOLE [Concomitant]
  7. FOSAMAX [Concomitant]
  8. VITAMINS [Concomitant]
  9. FLEXERIL /00428402/ [Concomitant]

REACTIONS (1)
  - MIDDLE INSOMNIA [None]
